FAERS Safety Report 25187282 (Version 5)
Quarter: 2025Q2

REPORT INFORMATION
  Report Type: Spontaneous
  Country: US (occurrence: US)
  Receive Date: 20250411
  Receipt Date: 20250604
  Transmission Date: 20250717
  Serious: Yes (Other)
  Sender: ROCHE
  Company Number: US-ROCHE-10000250449

PATIENT
  Age: 61 Year
  Sex: Female

DRUGS (4)
  1. VABYSMO [Suspect]
     Active Substance: FARICIMAB-SVOA
     Indication: Neovascular age-related macular degeneration
     Dosage: INJECTION IN BOTH EYES
     Route: 050
     Dates: start: 20250328
  2. VABYSMO [Suspect]
     Active Substance: FARICIMAB-SVOA
     Dosage: INJECTION IN BOTH EYES
     Route: 050
     Dates: start: 20250328
  3. AVASTIN [Suspect]
     Active Substance: BEVACIZUMAB
     Indication: Neovascular age-related macular degeneration
     Route: 050
     Dates: start: 20240617, end: 20250204
  4. AVASTIN [Suspect]
     Active Substance: BEVACIZUMAB
     Route: 050
     Dates: start: 20240923, end: 20250204

REACTIONS (10)
  - Feeling abnormal [Recovered/Resolved]
  - Dry eye [Recovered/Resolved]
  - Visual impairment [Recovered/Resolved]
  - Lacrimation decreased [Recovered/Resolved]
  - Conjunctival haemorrhage [Recovered/Resolved]
  - Off label use [Unknown]
  - Vision blurred [Recovered/Resolved]
  - Pulmonary fibrosis [Unknown]
  - Punctate keratitis [Unknown]
  - Off label use [Unknown]

NARRATIVE: CASE EVENT DATE: 20250328
